FAERS Safety Report 21762664 (Version 1)
Quarter: 2022Q4

REPORT INFORMATION
  Report Type: Spontaneous
  Country: US (occurrence: None)
  Receive Date: 20221221
  Receipt Date: 20221221
  Transmission Date: 20230113
  Serious: No
  Sender: FDA-Public Use
  Company Number: None

PATIENT
  Sex: Female
  Weight: 60.78 kg

DRUGS (10)
  1. ROSUVASTATIN [Suspect]
     Active Substance: ROSUVASTATIN
     Indication: Cardiac disorder
     Dosage: OTHER QUANTITY : 1 TABLET;?FREQUENCY : AT BEDTIME;?
     Route: 048
     Dates: end: 20221001
  2. Aspirin [Concomitant]
  3. POTASSIUM [Concomitant]
     Active Substance: POTASSIUM
  4. AMLODIPINE [Concomitant]
     Active Substance: AMLODIPINE BESYLATE
  5. Ezetitimibe [Concomitant]
  6. ALPRAZOLAM [Concomitant]
     Active Substance: ALPRAZOLAM
  7. METOPROLOL [Concomitant]
     Active Substance: METOPROLOL
  8. FOLIC ACID [Concomitant]
     Active Substance: FOLIC ACID
  9. VITAMIN B12 [Concomitant]
     Active Substance: CYANOCOBALAMIN
  10. VITAMIN D3 [Concomitant]
     Active Substance: CHOLECALCIFEROL

REACTIONS (8)
  - Chest discomfort [None]
  - Dysphonia [None]
  - Confusional state [None]
  - Respiratory rate increased [None]
  - Amnesia [None]
  - Blood urine present [None]
  - Asthenia [None]
  - Dysphagia [None]

NARRATIVE: CASE EVENT DATE: 20220401
